FAERS Safety Report 10410966 (Version 1)
Quarter: 2014Q3

REPORT INFORMATION
  Report Type: Spontaneous
  Country: US (occurrence: US)
  Receive Date: 20140826
  Receipt Date: 20140826
  Transmission Date: 20150326
  Serious: Yes (Other)
  Sender: FDA-Public Use
  Company Number: US-PFIZER INC-2014235732

PATIENT
  Sex: Male

DRUGS (2)
  1. CYMBALTA [Suspect]
     Active Substance: DULOXETINE HYDROCHLORIDE
     Dosage: UNK
     Dates: start: 201405
  2. GABAPENTIN. [Suspect]
     Active Substance: GABAPENTIN
     Dosage: 300 MG, 3X/DAY
     Dates: end: 201405

REACTIONS (6)
  - Mental impairment [Unknown]
  - Neuropathy peripheral [Unknown]
  - Drug intolerance [Unknown]
  - Confusional state [Unknown]
  - Hearing impaired [Unknown]
  - Diabetic neuropathy [Unknown]

NARRATIVE: CASE EVENT DATE: 2014
